FAERS Safety Report 4447974-0 (Version None)
Quarter: 2004Q3

REPORT INFORMATION
  Report Type: 
  Country: None (occurrence: None)
  Receive Date: 20040818
  Receipt Date: 20030901
  Transmission Date: 20050211
  Serious: Yes (Death)
  Sender: FDA-Public Use
  Company Number: 2003175801AU

PATIENT
  Weight: 3.6 kg

DRUGS (1)
  1. PROSTIN E2 [Suspect]
     Indication: INDUCED LABOUR
     Dosage: 1 MG, VAGINAL
     Route: 067
     Dates: start: 20030829, end: 20030829

REACTIONS (1)
  - DEATH [None]
